FAERS Safety Report 9286243 (Version 1)
Quarter: 2013Q2

REPORT INFORMATION
  Report Type: Spontaneous
  Country: CA (occurrence: CA)
  Receive Date: 20130513
  Receipt Date: 20130513
  Transmission Date: 20140414
  Serious: Yes (Hospitalization, Other)
  Sender: FDA-Public Use
  Company Number: PHHY2013CA046827

PATIENT
  Age: 52 Year
  Sex: Female

DRUGS (8)
  1. CLOZARIL [Suspect]
     Dosage: 300 MG, QD
     Route: 048
  2. DIOVAN [Suspect]
  3. DEPAKOTE SPRINKLE [Suspect]
     Dosage: 250 MG, TID
  4. DEPAKOTE SPRINKLE [Suspect]
     Dosage: 875 MG, QD
  5. NORVASC [Suspect]
  6. ATIVAN [Concomitant]
  7. PANTOLOC//PANTOPRAZOLE SODIUM SESQUIHYDRATE [Concomitant]
  8. SYNTHROID [Concomitant]

REACTIONS (4)
  - Alcoholism [Unknown]
  - Drug level below therapeutic [Unknown]
  - Hyponatraemia [Unknown]
  - Hypotension [Unknown]
